FAERS Safety Report 15735755 (Version 1)
Quarter: 2018Q4

REPORT INFORMATION
  Report Type: Spontaneous
  Country: US (occurrence: US)
  Receive Date: 20181218
  Receipt Date: 20181218
  Transmission Date: 20190205
  Serious: Yes (Other)
  Sender: FDA-Public Use
  Company Number: US-PFIZER INC-2018514307

PATIENT
  Age: 71 Year
  Sex: Male
  Weight: 71.16 kg

DRUGS (2)
  1. LATANOPROST. [Suspect]
     Active Substance: LATANOPROST
     Indication: GLAUCOMA
     Dosage: 1 DROP IN EACH EYE IN THE EVENING
     Route: 047
  2. TIMOLOL. [Concomitant]
     Active Substance: TIMOLOL
     Dosage: EYE DROPS
     Route: 047

REACTIONS (8)
  - Speech disorder [Not Recovered/Not Resolved]
  - Ageusia [Not Recovered/Not Resolved]
  - Weight decreased [Not Recovered/Not Resolved]
  - Pulmonary mass [Unknown]
  - Bacterial infection [Unknown]
  - Squamous cell carcinoma of the tongue [Unknown]
  - Incorrect dose administered by product [Not Recovered/Not Resolved]
  - Feeding disorder [Not Recovered/Not Resolved]

NARRATIVE: CASE EVENT DATE: 20181204
